FAERS Safety Report 19902611 (Version 6)
Quarter: 2022Q1

REPORT INFORMATION
  Report Type: Report from Study
  Country: US (occurrence: US)
  Receive Date: 20210930
  Receipt Date: 20220216
  Transmission Date: 20220423
  Serious: Yes (Hospitalization, Disabling, Other)
  Sender: FDA-Public Use
  Company Number: US-SANOFI-00405301

PATIENT
  Age: 50 Year
  Sex: Male

DRUGS (2)
  1. TERIFLUNOMIDE [Suspect]
     Active Substance: TERIFLUNOMIDE
     Indication: Multiple sclerosis
     Dosage: 14 MG, QD
     Route: 048
     Dates: start: 20201207
  2. PRILOSEC [Concomitant]
     Active Substance: OMEPRAZOLE MAGNESIUM
     Dosage: UNK UNK, QD

REACTIONS (16)
  - Bedridden [Not Recovered/Not Resolved]
  - Gait inability [Not Recovered/Not Resolved]
  - Loss of personal independence in daily activities [Unknown]
  - Hospitalisation [Not Recovered/Not Resolved]
  - Multiple sclerosis [Unknown]
  - Loss of consciousness [Unknown]
  - Colostomy [Unknown]
  - Wound [Unknown]
  - Extremity contracture [Unknown]
  - Pain [Unknown]
  - Nervous system disorder [Not Recovered/Not Resolved]
  - Discomfort [Not Recovered/Not Resolved]
  - Throat clearing [Not Recovered/Not Resolved]
  - Cough [Not Recovered/Not Resolved]
  - Bladder disorder [Not Recovered/Not Resolved]
  - Unevaluable event [Unknown]
